FAERS Safety Report 8187491-8 (Version None)
Quarter: 2012Q1

REPORT INFORMATION
  Report Type: 
  Country: None (occurrence: None)
  Receive Date: 20120302
  Receipt Date: 20110523
  Transmission Date: 20120608
  Serious: Yes (Hospitalization)
  Sender: FDA-Public Use
  Company Number: DE-022805

PATIENT
  Age: 66 Year
  Sex: Female
  Weight: 61 kg

DRUGS (2)
  1. CHLORAMBUCIL [Suspect]
     Indication: CHRONIC LYMPHOCYTIC LEUKAEMIA
     Dosage: 10 MG/M2 DAYS 1-7 EVERY 28 DAYS
     Route: 048
     Dates: start: 20110504
  2. (OFATUMUMAB) [Suspect]
     Indication: CHRONIC LYMPHOCYTIC LEUKAEMIA
     Dosage: 300 MG DAY 1, AND 1000 MG AT DAY 8
     Route: 042
     Dates: start: 20110504

REACTIONS (4)
  - HAEMOLYSIS [None]
  - GENERAL PHYSICAL HEALTH DETERIORATION [None]
  - ANAEMIA HAEMOLYTIC AUTOIMMUNE [None]
  - TRANSFUSION REACTION [None]
